FAERS Safety Report 9447161 (Version 1)
Quarter: 2013Q3

REPORT INFORMATION
  Report Type: Spontaneous
  Country: US (occurrence: US)
  Receive Date: 20130807
  Receipt Date: 20130807
  Transmission Date: 20140515
  Serious: No
  Sender: FDA-Public Use
  Company Number: US-AMGEN-USASP2013049447

PATIENT
  Age: 5 Year
  Sex: Female
  Weight: 19.8 kg

DRUGS (1)
  1. ENBREL [Suspect]
     Indication: JUVENILE IDIOPATHIC ARTHRITIS
     Dosage: 0.6 ML, QWK
     Route: 058
     Dates: start: 20130701

REACTIONS (1)
  - Abdominal pain upper [Recovered/Resolved]
